FAERS Safety Report 6617514-6 (Version None)
Quarter: 2010Q1

REPORT INFORMATION
  Report Type: 
  Country: None (occurrence: None)
  Receive Date: 20100302
  Receipt Date: 20100216
  Transmission Date: 20100710
  Serious: Yes (Hospitalization)
  Sender: FDA-Public Use
  Company Number: JPI-P-009806

PATIENT
  Age: 61 Year
  Sex: Female
  Weight: 81.6475 kg

DRUGS (3)
  1. XYREM [Suspect]
     Indication: NARCOLEPSY
     Dosage: ORAL, 2.5 GM (2.5 GM, 1 IN 1 D), ORAL, 1.5 GM (1.5 GM, 1 IN 1 D), ORAL
     Route: 048
     Dates: start: 20100119, end: 20100101
  2. XYREM [Suspect]
     Indication: NARCOLEPSY
     Dosage: ORAL, 2.5 GM (2.5 GM, 1 IN 1 D), ORAL, 1.5 GM (1.5 GM, 1 IN 1 D), ORAL
     Route: 048
     Dates: start: 20100101, end: 20100210
  3. XYREM [Suspect]
     Indication: NARCOLEPSY
     Dosage: ORAL, 2.5 GM (2.5 GM, 1 IN 1 D), ORAL, 1.5 GM (1.5 GM, 1 IN 1 D), ORAL
     Route: 048
     Dates: start: 20100101, end: 20100210

REACTIONS (4)
  - CONDITION AGGRAVATED [None]
  - COUGH [None]
  - DEEP VEIN THROMBOSIS [None]
  - PULMONARY EMBOLISM [None]
